FAERS Safety Report 26054461 (Version 2)
Quarter: 2025Q4

REPORT INFORMATION
  Report Type: Report from Study
  Country: EU (occurrence: EU)
  Receive Date: 20251117
  Receipt Date: 20251203
  Transmission Date: 20260118
  Serious: Yes (Other)
  Sender: AVERITAS
  Company Number: EU-GRUNENTHAL-2025-125015

PATIENT
  Age: 47 Year
  Sex: Female

DRUGS (2)
  1. QUTENZA [Suspect]
     Active Substance: CAPSAICIN
     Indication: Traumatic pain
     Dosage: 1 DOSAGE FORM, ONCE
     Route: 003
     Dates: start: 20251110, end: 20251110
  2. QUTENZA [Suspect]
     Active Substance: CAPSAICIN
     Indication: Neuralgia

REACTIONS (8)
  - Application site pain [Not Recovered/Not Resolved]
  - Application site erythema [Recovered/Resolved]
  - Application site pain [Not Recovered/Not Resolved]
  - Application site swelling [Not Recovered/Not Resolved]
  - Application site pain [Not Recovered/Not Resolved]
  - Anxiety [Recovered/Resolved]
  - Nausea [Recovered/Resolved]
  - Product use issue [Unknown]

NARRATIVE: CASE EVENT DATE: 20251101
